FAERS Safety Report 4317324-9 (Version None)
Quarter: 2004Q1

REPORT INFORMATION
  Report Type: 
  Country: None (occurrence: None)
  Receive Date: 20040312
  Receipt Date: 20040226
  Transmission Date: 20041129
  Serious: Yes (Other)
  Sender: FDA-Public Use
  Company Number: DE-JNJFOC-20031105493

PATIENT
  Sex: Male

DRUGS (8)
  1. REMICADE [Suspect]
     Indication: CROHN'S DISEASE
     Dosage: SEE IMAGE
     Route: 042
     Dates: start: 20030610
  2. REMICADE [Suspect]
     Indication: CROHN'S DISEASE
     Dosage: SEE IMAGE
     Route: 042
     Dates: start: 20031114
  3. IMUREK (AZATHIOPRINE) [Concomitant]
  4. MORPHINE SULFATE [Concomitant]
  5. NORPHIN (BUPRENORPHINE) [Concomitant]
  6. LANSOPRAZOLE [Concomitant]
  7. IRBESARTAN (IRBESARTAN) [Concomitant]
  8. SUMATRIPTAN SUCCINATE [Concomitant]

REACTIONS (7)
  - BLOOD TRIGLYCERIDES INCREASED [None]
  - CARDIOMEGALY [None]
  - DRUG INEFFECTIVE [None]
  - HEPATOCELLULAR DAMAGE [None]
  - HYPERTENSION [None]
  - TOOTH DISORDER [None]
  - WEIGHT INCREASED [None]
